FAERS Safety Report 17337821 (Version 1)
Quarter: 2020Q1

REPORT INFORMATION
  Report Type: Spontaneous
  Country: US (occurrence: US)
  Receive Date: 20200129
  Receipt Date: 20200129
  Transmission Date: 20200409
  Serious: Yes (Hospitalization, Other)
  Sender: FDA-Public Use
  Company Number: US-GLAXOSMITHKLINE-US2020AMR014201

PATIENT
  Age: 86 Year
  Sex: Female

DRUGS (1)
  1. INCRUSE ELLIPTA [Suspect]
     Active Substance: UMECLIDINIUM BROMIDE
     Indication: PRODUCT USED FOR UNKNOWN INDICATION
     Dosage: UNK
     Route: 065
     Dates: start: 20191214

REACTIONS (7)
  - Pain [Unknown]
  - Discomfort [Unknown]
  - Haemorrhage [Unknown]
  - Tuberculosis [Unknown]
  - Malaise [Unknown]
  - Transfusion [Unknown]
  - Dehydration [Unknown]

NARRATIVE: CASE EVENT DATE: 201912
